FAERS Safety Report 5222359-8 (Version None)
Quarter: 2007Q1

REPORT INFORMATION
  Report Type: 
  Country: None (occurrence: None)
  Receive Date: 20070129
  Receipt Date: 20070119
  Transmission Date: 20070707
  Serious: Yes (Hospitalization, Other)
  Sender: FDA-Public Use
  Company Number: US-PFIZER INC-2006152518

PATIENT
  Sex: Male
  Weight: 18.1 kg

DRUGS (4)
  1. ZYRTEC [Suspect]
     Indication: HYPERSENSITIVITY
     Route: 048
  2. ZYRTEC [Suspect]
     Indication: RHINITIS ALLERGIC
  3. MULTI-VITAMINS [Concomitant]
  4. FOCALIN [Concomitant]

REACTIONS (7)
  - ANOREXIA [None]
  - ATTENTION DEFICIT/HYPERACTIVITY DISORDER [None]
  - GROWTH RETARDATION [None]
  - OBSESSIVE-COMPULSIVE DISORDER [None]
  - SINUSITIS [None]
  - STRABISMUS [None]
  - TOURETTE'S DISORDER [None]
